FAERS Safety Report 11890949 (Version 1)
Quarter: 2016Q1

REPORT INFORMATION
  Report Type: Spontaneous
  Country: US (occurrence: US)
  Receive Date: 20160106
  Receipt Date: 20160106
  Transmission Date: 20160526
  Serious: Yes (Hospitalization, Other)
  Sender: FDA-Public Use
  Company Number: US-AMGEN-USASP2015140235

PATIENT
  Age: 66 Year
  Sex: Female

DRUGS (1)
  1. SENSIPAR [Suspect]
     Active Substance: CINACALCET HYDROCHLORIDE
     Indication: PRODUCT USED FOR UNKNOWN INDICATION
     Dosage: 60 MG, Q8H
     Route: 048
     Dates: start: 20151106

REACTIONS (4)
  - Dyspnoea [Unknown]
  - Renal disorder [Unknown]
  - Blood calcium increased [Unknown]
  - Gastrostomy [Unknown]

NARRATIVE: CASE EVENT DATE: 2015
